FAERS Safety Report 6860004-6 (Version None)
Quarter: 2010Q3

REPORT INFORMATION
  Report Type: 
  Country: None (occurrence: None)
  Receive Date: 20100720
  Receipt Date: 20100712
  Transmission Date: 20110219
  Serious: Yes (Other)
  Sender: FDA-Public Use
  Company Number: DE-PFIZER INC-2010087492

PATIENT
  Age: 19 Year
  Sex: Female

DRUGS (1)
  1. SAYANA [Suspect]
     Indication: CONTRACEPTION
     Dosage: UNK
     Dates: start: 20100225

REACTIONS (3)
  - BREAST TENDERNESS [None]
  - NAUSEA [None]
  - OVARIAN CYST [None]
